FAERS Safety Report 22589500 (Version 1)
Quarter: 2023Q2

REPORT INFORMATION
  Report Type: Other
  Country: CN (occurrence: None)
  Receive Date: 20230612
  Receipt Date: 20230612
  Transmission Date: 20230722
  Serious: Yes (Other)
  Sender: FDA-Public Use
  Company Number: CN-ROCHE-3363987

PATIENT

DRUGS (1)
  1. BEVACIZUMAB [Suspect]
     Active Substance: BEVACIZUMAB
     Indication: Drug level
     Dosage: FOR 90 MINUTES
     Route: 042

REACTIONS (7)
  - Sinus bradycardia [Unknown]
  - Protein urine present [Unknown]
  - Blood pressure increased [Unknown]
  - Mouth ulceration [Unknown]
  - Folliculitis [Unknown]
  - Blood triglycerides increased [Unknown]
  - Fibrin D dimer increased [Unknown]
